FAERS Safety Report 8857440 (Version 1)
Quarter: 2012Q4

REPORT INFORMATION
  Report Type: 
  Country: US (occurrence: US)
  Receive Date: 20121024
  Receipt Date: 20121024
  Transmission Date: 20130627
  Serious: No
  Sender: FDA-Public Use
  Company Number: US-009507513-1210USA008813

PATIENT
  Age: 23 None
  Sex: Female

DRUGS (1)
  1. NEXPLANON [Suspect]
     Indication: CONTRACEPTION
     Dosage: 1 implant every 3 years
     Dates: start: 20121008

REACTIONS (4)
  - Device expulsion [Unknown]
  - Device expulsion [Unknown]
  - Product quality issue [Unknown]
  - No adverse event [Unknown]
